FAERS Safety Report 8049433-5 (Version None)
Quarter: 2012Q1

REPORT INFORMATION
  Report Type: 
  Country: None (occurrence: None)
  Receive Date: 20120117
  Receipt Date: 20120111
  Transmission Date: 20120608
  Serious: Yes (Other)
  Sender: FDA-Public Use
  Company Number: US-ROCHE-793888

PATIENT
  Sex: Female
  Weight: 54.48 kg

DRUGS (2)
  1. ACCUTANE [Suspect]
     Indication: ACNE
     Route: 065
     Dates: start: 19950101, end: 19990101
  2. ACETAMINOPHEN [Concomitant]

REACTIONS (7)
  - OSTEOPENIA [None]
  - IRRITABLE BOWEL SYNDROME [None]
  - EMOTIONAL DISTRESS [None]
  - INSOMNIA [None]
  - DEPRESSION [None]
  - ARTHRITIS [None]
  - INFLAMMATORY BOWEL DISEASE [None]
